FAERS Safety Report 7420425-X (Version None)
Quarter: 2011Q2

REPORT INFORMATION
  Report Type: 
  Country: None (occurrence: None)
  Receive Date: 20110418
  Receipt Date: 20110412
  Transmission Date: 20111010
  Serious: No
  Sender: FDA-Public Use
  Company Number: US-PFIZER INC-2011080926

PATIENT
  Sex: Female
  Weight: 68.027 kg

DRUGS (3)
  1. HALCION [Suspect]
     Indication: ARTHRALGIA
  2. HALCION [Suspect]
     Indication: INSOMNIA
     Dosage: 25 MG, 1X/DAY
     Route: 048
     Dates: start: 20110401, end: 20110411
  3. PREMARIN [Concomitant]
     Dosage: UNK

REACTIONS (2)
  - AGITATION [None]
  - NIGHTMARE [None]
